FAERS Safety Report 6169586-3 (Version None)
Quarter: 2009Q2

REPORT INFORMATION
  Report Type: 
  Country: None (occurrence: None)
  Receive Date: 20090428
  Receipt Date: 20090423
  Transmission Date: 20091009
  Serious: Yes (Hospitalization)
  Sender: FDA-Public Use
  Company Number: US-BRISTOL-MYERS SQUIBB COMPANY-14581060

PATIENT
  Age: 84 Year
  Sex: Female
  Weight: 74 kg

DRUGS (11)
  1. CYCLOPHOSPHAMIDE [Suspect]
     Indication: DIFFUSE LARGE B-CELL LYMPHOMA
     Dosage: REDUCED TO 1018 MG ON 10APR09.
     Route: 042
     Dates: start: 20090320, end: 20090320
  2. ENZASTAURIN [Suspect]
     Indication: DIFFUSE LARGE B-CELL LYMPHOMA
     Dosage: LOADING DOSE D2;ALSO GIVEN AS 500MG(1/D)22MAR09.LAST RECD 27MAR09. REDUCED TO 250 MG/DAY- 10APR09
     Route: 048
     Dates: start: 20090321, end: 20090321
  3. RITUXIMAB [Suspect]
     Indication: DIFFUSE LARGE B-CELL LYMPHOMA
     Route: 042
     Dates: start: 20090320, end: 20090320
  4. DOXORUBICIN HCL [Suspect]
     Indication: DIFFUSE LARGE B-CELL LYMPHOMA
     Dosage: ON 10APR09 -REDUCED TO 68 MG.
     Route: 042
     Dates: start: 20090320, end: 20090320
  5. VINCRISTINE [Suspect]
     Indication: DIFFUSE LARGE B-CELL LYMPHOMA
     Route: 042
     Dates: start: 20090320, end: 20090320
  6. PREDNISONE TAB [Suspect]
     Indication: DIFFUSE LARGE B-CELL LYMPHOMA
     Dosage: LAST RECD ON 25-MAR-09.
     Route: 048
     Dates: start: 20090320, end: 20090320
  7. LISINOPRIL [Concomitant]
  8. SIMVASTATIN [Concomitant]
  9. NEXIUM [Concomitant]
  10. LEVOTHYROXINE SODIUM [Concomitant]
  11. HYDROMORPHONE HCL [Concomitant]
     Dates: start: 20090312

REACTIONS (5)
  - NAUSEA [None]
  - NEUTROPENIA [None]
  - PAIN [None]
  - PLATELET COUNT DECREASED [None]
  - WEIGHT DECREASED [None]
